FAERS Safety Report 14355917 (Version 2)
Quarter: 2018Q1

REPORT INFORMATION
  Report Type: Spontaneous
  Country: US (occurrence: US)
  Receive Date: 20180105
  Receipt Date: 20180123
  Transmission Date: 20180509
  Serious: Yes (Hospitalization, Disabling)
  Sender: FDA-Public Use
  Company Number: US-SA-2018SA002728

PATIENT
  Sex: Female

DRUGS (4)
  1. SOLOSTAR [Suspect]
     Active Substance: DEVICE
  2. LANTUS SOLOSTAR [Suspect]
     Active Substance: INSULIN GLARGINE
     Route: 051
  3. SOLOSTAR [Suspect]
     Active Substance: DEVICE
     Dosage: FREQUENCY: 3 TIMES DAILY AND 3 ML WITH SNACKS
  4. APIDRA SOLOSTAR [Suspect]
     Active Substance: INSULIN GLULISINE
     Dosage: DOSE: 8-25 UNITS 3TIMES A DAY AND 3 ML WITH SNACKS
     Route: 058

REACTIONS (4)
  - Hypoaesthesia [Unknown]
  - Disability [Unknown]
  - Back disorder [Unknown]
  - Nerve injury [Unknown]
